FAERS Safety Report 13522520 (Version 1)
Quarter: 2017Q2

REPORT INFORMATION
  Report Type: Spontaneous
  Country: FR (occurrence: FR)
  Receive Date: 20170508
  Receipt Date: 20170508
  Transmission Date: 20170830
  Serious: Yes (Other)
  Sender: FDA-Public Use
  Company Number: FR-PFIZER INC-2012323482

PATIENT
  Age: 15 Year
  Sex: Male

DRUGS (4)
  1. LEVETIRACETAM. [Suspect]
     Active Substance: LEVETIRACETAM
     Indication: SEIZURE
     Dosage: 15 MG/KG/DAY B.I.D.
  2. METHOTREXATE SODIUM. [Interacting]
     Active Substance: METHOTREXATE SODIUM
     Indication: B-CELL TYPE ACUTE LEUKAEMIA
     Dosage: 5 G/M2/24 HOUR
     Route: 037
  3. ONDANSETRON [Concomitant]
     Active Substance: ONDANSETRON
     Indication: VOMITING
     Dosage: UNK
  4. METOPIMAZINE [Concomitant]
     Active Substance: METOPIMAZINE
     Indication: VOMITING
     Dosage: UNK

REACTIONS (6)
  - Renal failure [Recovered/Resolved]
  - Vomiting [Unknown]
  - Drug interaction [Unknown]
  - Toxicity to various agents [Unknown]
  - Hypertension [Unknown]
  - Immunosuppressant drug level increased [Recovered/Resolved]
